FAERS Safety Report 7055422-X (Version None)
Quarter: 2010Q4

REPORT INFORMATION
  Report Type: 
  Country: None (occurrence: None)
  Receive Date: 20101021
  Receipt Date: 20101011
  Transmission Date: 20110411
  Serious: Yes (Death, Hospitalization, Other)
  Sender: FDA-Public Use
  Company Number: IT-BAYER-201041804GPV

PATIENT
  Age: 75 Year
  Sex: Male

DRUGS (9)
  1. NEXAVAR [Suspect]
     Indication: HEPATIC NEOPLASM MALIGNANT
     Dosage: TOTAL DAILY DOSE: 800 MG
     Route: 048
     Dates: start: 20100830, end: 20100921
  2. FUROSEMIDE [Concomitant]
     Dosage: TOTAL DAILY DOSE: 25 MG
     Route: 048
  3. FENTANYL [Concomitant]
     Route: 062
  4. CANRENONE [Concomitant]
     Dosage: TOTAL DAILY DOSE: 50 MG
     Route: 048
  5. BISOPROLOL FUMARATE [Concomitant]
     Route: 048
  6. ENOXAPARIN SODIUM [Concomitant]
     Route: 058
  7. PRELECTAL [Concomitant]
     Dosage: TOTAL DAILY DOSE: 3.12 MG
     Route: 048
  8. APIDRA [Concomitant]
     Route: 058
  9. LANTUS [Concomitant]
     Route: 058

REACTIONS (3)
  - HEPATIC ENCEPHALOPATHY [None]
  - HEPATITIS ACUTE [None]
  - OCULAR ICTERUS [None]
